FAERS Safety Report 16048349 (Version 3)
Quarter: 2019Q1

REPORT INFORMATION
  Report Type: Spontaneous
  Country: US (occurrence: US)
  Receive Date: 20190307
  Receipt Date: 20190312
  Transmission Date: 20190418
  Serious: Yes (Hospitalization)
  Sender: FDA-Public Use
  Company Number: US-SAOL THERAPEUTICS-2019SAO00070

PATIENT
  Age: 67 Year
  Sex: Male

DRUGS (3)
  1. LIORESAL [Suspect]
     Active Substance: BACLOFEN
     Dosage: 800 ?G, \DAY
     Route: 037
     Dates: start: 20190227
  2. LIORESAL [Suspect]
     Active Substance: BACLOFEN
     Dosage: 720 ?G, \DAY
     Route: 037
     Dates: start: 20190222, end: 20190227
  3. LIORESAL [Suspect]
     Active Substance: BACLOFEN
     Dosage: 710 ?G, \DAY
     Route: 037
     Dates: end: 20190222

REACTIONS (5)
  - Muscle spasticity [Recovering/Resolving]
  - Muscle spasms [Recovering/Resolving]
  - Urinary tract infection [Unknown]
  - Clonus [Not Recovered/Not Resolved]
  - Asthenia [Not Recovered/Not Resolved]

NARRATIVE: CASE EVENT DATE: 201902
